FAERS Safety Report 10666173 (Version 1)
Quarter: 2014Q4

REPORT INFORMATION
  Report Type: Spontaneous
  Country: US (occurrence: US)
  Receive Date: 20141219
  Receipt Date: 20141219
  Transmission Date: 20150529
  Serious: No
  Sender: FDA-Public Use
  Company Number: US-ASTRAZENECA-2014SE95297

PATIENT
  Sex: Male

DRUGS (2)
  1. TENORMIN [Suspect]
     Active Substance: ATENOLOL
     Route: 065
  2. TENORMIN [Suspect]
     Active Substance: ATENOLOL
     Dosage: GENERIC
     Route: 065

REACTIONS (1)
  - Peripheral swelling [Unknown]
